FAERS Safety Report 7628403-2 (Version None)
Quarter: 2011Q3

REPORT INFORMATION
  Report Type: 
  Country: None (occurrence: None)
  Receive Date: 20110722
  Receipt Date: 20110715
  Transmission Date: 20111222
  Serious: Yes (Death, Other)
  Sender: FDA-Public Use
  Company Number: GB-PFIZER INC-2011160809

PATIENT
  Age: 77 Year
  Sex: Female

DRUGS (5)
  1. DONEPEZIL [Concomitant]
     Dosage: 10 MG, 1X/DAY FOR THE LAST 5 YEARS
  2. ATORVASTATIN CALCIUM [Suspect]
     Dosage: 80 MG, 1X/DAY
  3. ATORVASTATIN CALCIUM [Suspect]
     Dosage: 40 MG, 1X/DAY
  4. ACETYLSALICYLIC ACID [Concomitant]
     Dosage: 75 MG, 1X/DAY
  5. LEVOTHYROXINE SODIUM [Concomitant]
     Dosage: 75 UG, DAILY

REACTIONS (3)
  - HEPATITIS [None]
  - MULTI-ORGAN FAILURE [None]
  - RHABDOMYOLYSIS [None]
